FAERS Safety Report 24277710 (Version 3)
Quarter: 2024Q4

REPORT INFORMATION
  Report Type: Spontaneous
  Country: US (occurrence: US)
  Receive Date: 20240903
  Receipt Date: 20241022
  Transmission Date: 20250115
  Serious: Yes (Other)
  Sender: LEADING PHARMA
  Company Number: US-LEADINGPHARMA-US-2024LEASPO00368

PATIENT
  Age: 61 Year
  Sex: Female
  Weight: 70.03 kg

DRUGS (7)
  1. LORAZEPAM [Suspect]
     Active Substance: LORAZEPAM
     Indication: Anxiety
     Route: 048
     Dates: start: 20240617, end: 20240820
  2. LORAZEPAM [Suspect]
     Active Substance: LORAZEPAM
     Indication: Panic disorder
     Route: 065
     Dates: start: 20240904, end: 20240904
  3. LORAZEPAM [Suspect]
     Active Substance: LORAZEPAM
     Indication: Post-traumatic stress disorder
  4. LORAZEPAM [Suspect]
     Active Substance: LORAZEPAM
     Indication: Hydrophobia
  5. PROZAC [Concomitant]
     Active Substance: FLUOXETINE HYDROCHLORIDE
     Indication: Product used for unknown indication
     Route: 065
  6. AMLODIPINE [Concomitant]
     Active Substance: AMLODIPINE BESYLATE
     Indication: Product used for unknown indication
     Route: 065
  7. OLMESARTAN [Concomitant]
     Active Substance: OLMESARTAN
     Indication: Product used for unknown indication
     Route: 065

REACTIONS (13)
  - Crohn^s disease [Unknown]
  - Dyspepsia [Not Recovered/Not Resolved]
  - Panic attack [Not Recovered/Not Resolved]
  - Illness [Unknown]
  - Diarrhoea [Unknown]
  - Vomiting [Unknown]
  - Suspected product quality issue [Unknown]
  - Product physical issue [Unknown]
  - Drug ineffective for unapproved indication [Unknown]
  - Therapeutic response changed [Unknown]
  - Product substitution issue [Unknown]
  - Recalled product administered [Unknown]
  - Recalled product [Unknown]

NARRATIVE: CASE EVENT DATE: 20240710
